FAERS Safety Report 5325166-0 (Version None)
Quarter: 2007Q2

REPORT INFORMATION
  Report Type: 
  Country: None (occurrence: None)
  Receive Date: 20070515
  Receipt Date: 20070510
  Transmission Date: 20071010
  Serious: Yes (Life-Threatening, Hospitalization, Disabling, Other)
  Sender: FDA-Public Use
  Company Number: A0646885A

PATIENT
  Age: 33 Year
  Sex: Female
  Weight: 54.1 kg

DRUGS (1)
  1. LAMICTAL [Suspect]
     Indication: EPILEPSY
     Route: 048
     Dates: start: 20070223

REACTIONS (11)
  - ELECTROENCEPHALOGRAM ABNORMAL [None]
  - EPILEPSY [None]
  - HEPATIC FAILURE [None]
  - MUCOUS MEMBRANE DISORDER [None]
  - PULMONARY EMBOLISM [None]
  - RASH VESICULAR [None]
  - RENAL FAILURE [None]
  - SKIN EXFOLIATION [None]
  - SKIN LESION [None]
  - STEVENS-JOHNSON SYNDROME [None]
  - TOXIC EPIDERMAL NECROLYSIS [None]
